FAERS Safety Report 14446293 (Version 1)
Quarter: 2018Q1

REPORT INFORMATION
  Report Type: Spontaneous
  Country: US (occurrence: US)
  Receive Date: 20180126
  Receipt Date: 20180126
  Transmission Date: 20180509
  Serious: No
  Sender: FDA-Public Use
  Company Number: US-PFIZER INC-2018036869

PATIENT
  Age: 62 Year
  Sex: Female
  Weight: 62.6 kg

DRUGS (2)
  1. ESTRING [Suspect]
     Active Substance: ESTRADIOL
     Indication: MENOPAUSE
     Dosage: 7.5 UG, EVERY 3 MONTHS
     Route: 067
  2. ESTRING [Suspect]
     Active Substance: ESTRADIOL
     Indication: OESTROGEN DEFICIENCY
     Dosage: 7.5 UG, UNK (EVERY 2 MONTHS )
     Route: 067

REACTIONS (3)
  - Product use issue [Unknown]
  - Product quality issue [Unknown]
  - Vulvovaginal discomfort [Unknown]

NARRATIVE: CASE EVENT DATE: 201712
